FAERS Safety Report 11349044 (Version 4)
Quarter: 2015Q4

REPORT INFORMATION
  Report Type: Spontaneous
  Country: US (occurrence: US)
  Receive Date: 20150807
  Receipt Date: 20151211
  Transmission Date: 20160304
  Serious: Yes (Other)
  Sender: FDA-Public Use
  Company Number: US-PFIZER INC-2015259669

PATIENT
  Age: 79 Year
  Sex: Female
  Weight: 88 kg

DRUGS (9)
  1. SYSTANE (HYPROMELLOSE 2910 (4000 MPA.S)) [Concomitant]
     Active Substance: HYPROMELLOSE 2910 (4000 MPA.S)
     Indication: MEIBOMIANITIS
  2. SYSTANE (HYPROMELLOSE 2910 (4000 MPA.S)) [Concomitant]
     Active Substance: HYPROMELLOSE 2910 (4000 MPA.S)
     Indication: DRY EYE
     Dosage: IN BOTH EYES, AS NEEDED (SYSTANE10ML)
     Route: 047
     Dates: start: 20140111
  3. RESTASIS [Concomitant]
     Active Substance: CYCLOSPORINE
     Indication: DRY EYE
     Dosage: IN BOTH EYES, 2X/DAY (0.05%)
     Route: 047
     Dates: start: 20130211
  4. XALATAN [Suspect]
     Active Substance: LATANOPROST
     Dosage: 1 DROPIN EACH EYE,  AT NIGHT
     Route: 047
     Dates: start: 20120815
  5. LABETALOL [Concomitant]
     Active Substance: LABETALOL\LABETALOL HYDROCHLORIDE
     Indication: HYPERTENSION
     Dosage: 200 MG, UNK
  6. RESTASIS [Concomitant]
     Active Substance: CYCLOSPORINE
     Indication: MEIBOMIANITIS
  7. CLONIDINE. [Concomitant]
     Active Substance: CLONIDINE
     Dosage: UNK, UNK
  8. XALATAN [Suspect]
     Active Substance: LATANOPROST
     Indication: GLAUCOMA
     Dosage: 1 DROP IN EACH EYE,  AT NIGHT
     Route: 047
     Dates: start: 2011
  9. LOSARTAN. [Concomitant]
     Active Substance: LOSARTAN
     Dosage: UNK

REACTIONS (9)
  - Eye disorder [Recovered/Resolved]
  - Eye infection [Recovered/Resolved]
  - Incorrect product storage [Recovered/Resolved]
  - Eye inflammation [Recovered/Resolved]
  - Eye complication associated with device [Recovered/Resolved]
  - Conjunctival disorder [Unknown]
  - Ocular hyperaemia [Recovered/Resolved]
  - Eye discharge [Recovered/Resolved]
  - Drug dose omission [Recovering/Resolving]

NARRATIVE: CASE EVENT DATE: 20150730
